FAERS Safety Report 6715824-5 (Version None)
Quarter: 2010Q2

REPORT INFORMATION
  Report Type: 
  Country: None (occurrence: None)
  Receive Date: 20100507
  Receipt Date: 20100430
  Transmission Date: 20101027
  Serious: Yes (Other)
  Sender: FDA-Public Use
  Company Number: US-TEVA-004937

PATIENT
  Age: 59 Year
  Sex: Female

DRUGS (6)
  1. MEDROXYPROGESTERONE ACETATE [Suspect]
     Route: 048
     Dates: start: 19850101, end: 20000101
  2. AYGESTIN TABLET 5MG, NORETHINDRONE ACETATE [Suspect]
     Route: 048
     Dates: start: 19850101, end: 20000101
  3. PROVERA [Suspect]
     Route: 048
     Dates: start: 19850101, end: 20000101
  4. PREMPRO [Suspect]
     Route: 048
     Dates: start: 19850101, end: 20000101
  5. PREMARIN [Suspect]
     Route: 048
     Dates: start: 19850101, end: 20000101
  6. CYCRIN [Suspect]
     Route: 048
     Dates: start: 19850101, end: 20000101

REACTIONS (2)
  - BREAST CANCER [None]
  - BREAST CANCER METASTATIC [None]
